FAERS Safety Report 5581276-4 (Version None)
Quarter: 2008Q1

REPORT INFORMATION
  Report Type: 
  Country: None (occurrence: None)
  Receive Date: 20080104
  Receipt Date: 20071220
  Transmission Date: 20080703
  Serious: Yes (Hospitalization, Other)
  Sender: FDA-Public Use
  Company Number: US-ELI_LILLY_AND_COMPANY-US200712004525

PATIENT
  Sex: Female

DRUGS (3)
  1. FORTEO [Suspect]
     Indication: OSTEOPENIA
     Dates: start: 20071026, end: 20071130
  2. ZETIA [Concomitant]
  3. ESTRING [Concomitant]

REACTIONS (3)
  - FALL [None]
  - HIP FRACTURE [None]
  - JOINT DISLOCATION POSTOPERATIVE [None]
